FAERS Safety Report 25036058 (Version 1)
Quarter: 2025Q1

REPORT INFORMATION
  Report Type: Spontaneous
  Country: US (occurrence: None)
  Receive Date: 20250303
  Receipt Date: 20250303
  Transmission Date: 20250409
  Serious: Yes (Life-Threatening, Disabling, Other)
  Sender: FDA-CTU
  Company Number: None

PATIENT
  Age: 79 Year
  Sex: Male
  Weight: 75.6 kg

DRUGS (1)
  1. ZANUBRUTINIB [Suspect]
     Active Substance: ZANUBRUTINIB
     Dosage: 320 MG DAILY
     Dates: start: 20240517, end: 20250203

REACTIONS (2)
  - Lip and/or oral cavity cancer [None]
  - Lymphoma [None]

NARRATIVE: CASE EVENT DATE: 20250303
